FAERS Safety Report 5137426-7 (Version None)
Quarter: 2006Q4

REPORT INFORMATION
  Report Type: 
  Country: None (occurrence: None)
  Receive Date: 20061030
  Receipt Date: 20051102
  Transmission Date: 20070319
  Serious: No
  Sender: FDA-Public Use
  Company Number: US-GLAXOSMITHKLINE-A0580534A

PATIENT

DRUGS (3)
  1. ADVAIR HFA [Suspect]
     Indication: CHRONIC OBSTRUCTIVE PULMONARY DISEASE
     Route: 055
  2. PAXIL [Concomitant]
     Indication: DEPRESSION
     Route: 048
  3. DOXEPIN HCL [Concomitant]
     Indication: DEPRESSION
     Route: 065

REACTIONS (1)
  - FATIGUE [None]
